FAERS Safety Report 25230873 (Version 1)
Quarter: 2025Q2

REPORT INFORMATION
  Report Type: Spontaneous
  Country: ES (occurrence: A1)
  Receive Date: 20250423
  Receipt Date: 20250423
  Transmission Date: 20250716
  Serious: Yes (Death, Life-Threatening, Other)
  Sender: BRECKENRIDGE PHARMACEUTICAL, INC.
  Company Number: A1-Breckenridge Pharmaceutical, Inc.-2175421

PATIENT
  Sex: Female

DRUGS (10)
  1. OMEPRAZOLE [Suspect]
     Active Substance: OMEPRAZOLE
  2. CLOZAPINE [Concomitant]
     Active Substance: CLOZAPINE
  3. LEVOTHYROXINE [Concomitant]
     Active Substance: LEVOTHYROXINE
  4. MORPHINE SULFATE [Concomitant]
     Active Substance: MORPHINE SULFATE
  5. DIAZEPAM [Concomitant]
     Active Substance: DIAZEPAM
  6. PROMETHAZINE [Concomitant]
     Active Substance: PROMETHAZINE HYDROCHLORIDE
  7. DULOXETINE [Concomitant]
     Active Substance: DULOXETINE
  8. LAMOTRIGINE [Concomitant]
     Active Substance: LAMOTRIGINE
  9. FEXOFENADINE [Concomitant]
     Active Substance: FEXOFENADINE HYDROCHLORIDE
  10. BISACODYL [Concomitant]
     Active Substance: BISACODYL

REACTIONS (5)
  - Fat embolism [Not Recovered/Not Resolved]
  - Myocardial fibrosis [Not Recovered/Not Resolved]
  - Uterine polyp [Not Recovered/Not Resolved]
  - Off label use [Not Recovered/Not Resolved]
  - Toxicity to various agents [Fatal]
